FAERS Safety Report 6659785-6 (Version None)
Quarter: 2010Q1

REPORT INFORMATION
  Report Type: 
  Country: None (occurrence: None)
  Receive Date: 20100325
  Receipt Date: 20100316
  Transmission Date: 20100710
  Serious: Yes (Life-Threatening)
  Sender: FDA-Public Use
  Company Number: 203089

PATIENT
  Age: 74 Year
  Sex: Female
  Weight: 38.3 kg

DRUGS (17)
  1. DEXMEDETOMIDINE HYDROCHLORIDE [Suspect]
     Indication: SEDATIVE THERAPY
     Dosage: 15-20 UG/HR, INTRAVENOUS 10 UG/HR 0.25 UG/KG/HR 0.52 UG/KG/HR 0.26 UG/KG/HR
     Route: 042
     Dates: start: 20080808, end: 20080808
  2. PROPOFOL [Suspect]
     Indication: GENERAL ANAESTHESIA
     Dosage: 80 MG/HR, INTRAVENOUS DRIP
     Route: 041
     Dates: start: 20080808, end: 20080808
  3. FENTANYL [Suspect]
     Indication: INDUCTION OF ANAESTHESIA
     Dosage: 200 MCG, INTRAVENOUS DRIP 900 MCG 50 MCH/HR
     Route: 041
     Dates: start: 20080808, end: 20080808
  4. FENTANYL [Suspect]
     Indication: MAINTENANCE OF ANAESTHESIA
     Dosage: 200 MCG, INTRAVENOUS DRIP 900 MCG 50 MCH/HR
     Route: 041
     Dates: start: 20080808, end: 20080808
  5. (SEVOFRANE) [Suspect]
     Indication: MAINTENANCE OF ANAESTHESIA
     Dosage: INHALATION
     Dates: start: 20080808, end: 20080808
  6. ULTIVA [Suspect]
     Indication: ANALGESIC THERAPY
     Dosage: 0.1 -0. 15 UG/KG/MIN, INTRAVENOUS
     Route: 042
     Dates: start: 20080808, end: 20080808
  7. (DORMICUM /00036201/) [Concomitant]
  8. (MUSCULAX) [Concomitant]
  9. HUMULIN R [Concomitant]
  10. (SOLITA T /01128901/) [Concomitant]
  11. SOLU-CORTEF [Concomitant]
  12. (FOSMICIN S) [Concomitant]
  13. (ADONA /00056903/) [Concomitant]
  14. (TRANSAMIN) [Concomitant]
  15. RED BLOOD CELLS [Concomitant]
  16. (CORTICOSTEROIDS) [Concomitant]
  17. (THYRODIN) [Concomitant]

REACTIONS (8)
  - BLOOD PRESSURE INCREASED [None]
  - DRUG INTERACTION [None]
  - FEELING ABNORMAL [None]
  - RESPIRATORY ACIDOSIS [None]
  - RESPIRATORY ARREST [None]
  - RESPIRATORY DEPRESSION [None]
  - SEDATION [None]
  - UPPER AIRWAY OBSTRUCTION [None]
